FAERS Safety Report 9722188 (Version 3)
Quarter: 2014Q1

REPORT INFORMATION
  Report Type: Spontaneous
  Country: ES (occurrence: ES)
  Receive Date: 20131202
  Receipt Date: 20140110
  Transmission Date: 20141002
  Serious: Yes (Other)
  Sender: FDA-Public Use
  Company Number: ES-AMGEN-ESPSP2013083608

PATIENT
  Age: 81 Year
  Sex: Female

DRUGS (7)
  1. PROLIA [Suspect]
     Indication: OSTEOPOROSIS
     Dosage: 60 MG, UNK
     Route: 058
  2. DULOXETINE [Concomitant]
     Dosage: 150 MG, QD
  3. ALPRAZOLAM [Concomitant]
     Dosage: 1.50 MG, QD
  4. MIRTAZAPINE [Concomitant]
     Dosage: 15 MG, QD
  5. IBANDRONATE [Concomitant]
     Dosage: 150 MG, UNK
  6. CALCIUM CARBONATE [Concomitant]
     Dosage: 2.500 MG, UNK
  7. CHOLECALCIFEROL [Concomitant]
     Dosage: 880 IU

REACTIONS (3)
  - Depression [Recovering/Resolving]
  - Erythropenia [Unknown]
  - Haematocrit abnormal [Unknown]
